FAERS Safety Report 20868569 (Version 2)
Quarter: 2022Q2

REPORT INFORMATION
  Report Type: Report from Study
  Country: TH (occurrence: None)
  Receive Date: 20220524
  Receipt Date: 20220531
  Transmission Date: 20220721
  Serious: Yes (Hospitalization)
  Sender: FDA-Public Use
  Company Number: TH-ROCHE-2796016

PATIENT
  Age: 64 Year
  Sex: Female
  Weight: 61 kg

DRUGS (20)
  1. ATEZOLIZUMAB [Suspect]
     Active Substance: ATEZOLIZUMAB
     Indication: Triple negative breast cancer
     Dosage: DATE OF MOST RECENT DOSE: 02/MAR/2021
     Route: 041
     Dates: start: 20201027
  2. PACLITAXEL [Suspect]
     Active Substance: PACLITAXEL
     Indication: Triple negative breast cancer
     Dosage: DATE OF MOST RECENT DOSE: 11/JAN/2021 (130 MG)
     Route: 042
     Dates: start: 20201027
  3. DOXORUBICIN [Suspect]
     Active Substance: DOXORUBICIN
     Indication: Triple negative breast cancer
     Dosage: DATE OF MOST RECENT DOSE: 02/MAR/2021 (100 MG)
     Route: 042
     Dates: start: 20210118
  4. CYCLOPHOSPHAMIDE [Suspect]
     Active Substance: CYCLOPHOSPHAMIDE
     Indication: Triple negative breast cancer
     Dosage: DATE OF MOST RECENT DOSE: 02/MAR/2021 (1000 MG)
     Route: 042
     Dates: start: 20210118
  5. PEGFILGRASTIM [Suspect]
     Active Substance: PEGFILGRASTIM
     Indication: Triple negative breast cancer
     Route: 058
     Dates: start: 20210120, end: 20210120
  6. PEGFILGRASTIM [Suspect]
     Active Substance: PEGFILGRASTIM
     Dosage: 17/FEB/2021 AND 04/MAR/2021
     Route: 058
     Dates: start: 20210204, end: 20210204
  7. PEGFILGRASTIM [Suspect]
     Active Substance: PEGFILGRASTIM
     Route: 058
     Dates: start: 20210217, end: 20210217
  8. PEGFILGRASTIM [Suspect]
     Active Substance: PEGFILGRASTIM
     Route: 058
     Dates: start: 20210304, end: 20210304
  9. DYNASTAT [Concomitant]
     Active Substance: PARECOXIB SODIUM
     Dates: start: 20210320, end: 20210326
  10. ZYVOX [Concomitant]
     Active Substance: LINEZOLID
     Dates: start: 20210323, end: 20210330
  11. CIPROFLOXACIN [Concomitant]
     Active Substance: CIPROFLOXACIN
     Dates: start: 20210323, end: 20210404
  12. BIAPENEM [Concomitant]
     Active Substance: BIAPENEM
     Dates: start: 20210322, end: 20210323
  13. LORAZEPAM [Concomitant]
     Active Substance: LORAZEPAM
     Dates: start: 20210320, end: 20210326
  14. XYZAL [Concomitant]
     Active Substance: LEVOCETIRIZINE DIHYDROCHLORIDE
     Dates: start: 20210317, end: 20210326
  15. ROPECT [Concomitant]
     Dates: start: 20210317, end: 20210326
  16. ACETAMINOPHEN [Concomitant]
     Active Substance: ACETAMINOPHEN
     Dates: start: 20210317, end: 20210326
  17. REPARIL (THAILAND) [Concomitant]
     Dates: start: 20210323, end: 20210326
  18. CEFTRIAXONE [Concomitant]
     Active Substance: CEFTRIAXONE
     Dates: start: 20210317, end: 20210318
  19. VANCOMYCIN [Concomitant]
     Active Substance: VANCOMYCIN
     Dates: start: 20210320, end: 20210323
  20. DEXTROMETHORPHAN [Concomitant]
     Active Substance: DEXTROMETHORPHAN
     Dates: start: 20210320, end: 20210326

REACTIONS (1)
  - Vascular device infection [Recovered/Resolved]

NARRATIVE: CASE EVENT DATE: 20210313
